FAERS Safety Report 9173588 (Version 2)
Quarter: 2013Q1

REPORT INFORMATION
  Report Type: Spontaneous
  Country: US (occurrence: None)
  Receive Date: 20130211
  Receipt Date: 20130304
  Transmission Date: 20140127
  Serious: Yes (Other)
  Sender: FDA-Public Use
  Company Number: 2013034600

PATIENT
  Age: 32 Year
  Sex: Male

DRUGS (1)
  1. HAEMATE P [Suspect]
     Indication: EPISTAXIS
     Dates: start: 20121109, end: 20121109

REACTIONS (7)
  - Factor VIII inhibition [None]
  - Von Willebrand^s factor inhibition [None]
  - Chest discomfort [None]
  - Chest pain [None]
  - Malaise [None]
  - Dyspnoea [None]
  - Flushing [None]
